FAERS Safety Report 20923666 (Version 1)
Quarter: 2022Q2

REPORT INFORMATION
  Report Type: Report from Study
  Country: US (occurrence: US)
  Receive Date: 20220607
  Receipt Date: 20220607
  Transmission Date: 20220721
  Serious: No
  Sender: FDA-Public Use
  Company Number: US-NOVARTISTESTPH-NVSC2022US130318

PATIENT
  Sex: Male

DRUGS (1)
  1. ENTRESTO [Suspect]
     Active Substance: SACUBITRIL\VALSARTAN
     Indication: Blood pressure abnormal
     Dosage: UNK UNK, BID
     Route: 065

REACTIONS (3)
  - Decreased activity [Not Recovered/Not Resolved]
  - Cardiac disorder [Unknown]
  - Product use in unapproved indication [Recovered/Resolved]
